FAERS Safety Report 9991074 (Version 1)
Quarter: 2014Q1

REPORT INFORMATION
  Report Type: Report from Study
  Country: US (occurrence: US)
  Receive Date: 20140310
  Receipt Date: 20140310
  Transmission Date: 20141002
  Serious: No
  Sender: FDA-Public Use
  Company Number: US-ABBVIE-13P-163-1131748-00

PATIENT
  Sex: Male

DRUGS (22)
  1. HUMIRA [Suspect]
     Indication: CROHN^S DISEASE
     Dates: start: 2003
  2. ASA [Concomitant]
     Indication: PRODUCT USED FOR UNKNOWN INDICATION
     Dosage: 81 MG DAILY
  3. CARVEDILOL [Concomitant]
     Indication: CARDIAC DISORDER
  4. CENTRUM SILVER [Concomitant]
     Indication: PRODUCT USED FOR UNKNOWN INDICATION
     Dosage: DAILY
  5. QUESTRAN [Concomitant]
     Indication: CARDIAC DISORDER
     Dosage: 4 PACKETS FOUR TIMES A DAY
  6. BENADRYL [Concomitant]
     Indication: PRURITUS
  7. LOMOTIL [Concomitant]
     Indication: DIARRHOEA
  8. FERROUS SULFATE [Concomitant]
     Indication: PRODUCT USED FOR UNKNOWN INDICATION
  9. FLOMAX [Concomitant]
     Indication: PRODUCT USED FOR UNKNOWN INDICATION
     Route: 048
  10. IBUPROFEN [Concomitant]
     Indication: PAIN
  11. SYNTHROID [Concomitant]
     Indication: PRODUCT USED FOR UNKNOWN INDICATION
  12. LEVSIN [Concomitant]
     Indication: ABDOMINAL PAIN UPPER
  13. LEXAPRO [Concomitant]
     Indication: DEPRESSION
  14. LISINOPRIL [Concomitant]
     Indication: BLOOD PRESSURE
  15. LORAZEPAM [Concomitant]
     Indication: PRODUCT USED FOR UNKNOWN INDICATION
     Dosage: 2 MG ONCE EVERY 4-6 HOURS AS NEEDED
  16. PENTASA [Concomitant]
     Indication: PRODUCT USED FOR UNKNOWN INDICATION
  17. PERCOCET [Concomitant]
     Indication: PAIN
     Dosage: 10/325 MG ONCE EVERY 4 HOURS
  18. POTASSIUM CHLORIDE [Concomitant]
     Indication: PRODUCT USED FOR UNKNOWN INDICATION
     Dosage: 20 MEQ TWICE DAILY 10%
  19. PREVACID [Concomitant]
     Indication: GASTRIC DISORDER
  20. TORSEMIDE [Concomitant]
     Indication: PRODUCT USED FOR UNKNOWN INDICATION
     Dosage: CHEW
  21. VALIUM [Concomitant]
     Indication: PRODUCT USED FOR UNKNOWN INDICATION
     Dosage: ONE EVERY SIX HOURS AS NEEDED
  22. ZAROXOLYN [Concomitant]
     Indication: PRODUCT USED FOR UNKNOWN INDICATION

REACTIONS (2)
  - Diarrhoea [Not Recovered/Not Resolved]
  - Immunodeficiency [Unknown]
